FAERS Safety Report 23046908 (Version 1)
Quarter: 2023Q4

REPORT INFORMATION
  Report Type: Spontaneous
  Country: CN (occurrence: CN)
  Receive Date: 20231009
  Receipt Date: 20231009
  Transmission Date: 20240110
  Serious: Yes (Other)
  Sender: FDA-Public Use
  Company Number: CN-WOODWARD-2023-CN-000535

PATIENT
  Age: 27 Year
  Sex: Male

DRUGS (4)
  1. RABEPRAZOLE SODIUM [Suspect]
     Active Substance: RABEPRAZOLE SODIUM
     Indication: Helicobacter infection
     Dosage: FREQUENCY UNKNOWN (20 MG)
     Route: 048
     Dates: start: 20230911, end: 20230924
  2. BISMUTH ALUMINATE [Suspect]
     Active Substance: BISMUTH ALUMINATE
     Route: 048
     Dates: start: 20230911, end: 20230924
  3. METRONIDAZOLE [Suspect]
     Active Substance: METRONIDAZOLE
     Dosage: FREQUENCY UNKNOWN (1.2 GM)
     Route: 048
     Dates: start: 20230911, end: 20230924
  4. AMOXICILLIN [Suspect]
     Active Substance: AMOXICILLIN
     Dosage: FREQUENCY UNKNOWN (2 GM)
     Route: 048
     Dates: start: 20230911, end: 20230924

REACTIONS (2)
  - Macule [Unknown]
  - Pruritus [Unknown]

NARRATIVE: CASE EVENT DATE: 20230923
